FAERS Safety Report 12038063 (Version 1)
Quarter: 2016Q1

REPORT INFORMATION
  Report Type: Spontaneous
  Country: US (occurrence: US)
  Receive Date: 20160208
  Receipt Date: 20160208
  Transmission Date: 20160526
  Serious: Yes (Hospitalization)
  Sender: FDA-Public Use
  Company Number: PHHY2016US011644

PATIENT
  Age: 9 Year
  Sex: Male

DRUGS (1)
  1. VORICONAZOLE. [Suspect]
     Active Substance: VORICONAZOLE
     Indication: ASPERGILLUS INFECTION
     Route: 065

REACTIONS (3)
  - Pseudoporphyria [Recovered/Resolved]
  - Photoonycholysis [Recovered/Resolved]
  - Photosensitivity reaction [Recovered/Resolved]
